FAERS Safety Report 6237514-8 (Version None)
Quarter: 2009Q2

REPORT INFORMATION
  Report Type: 
  Country: None (occurrence: None)
  Receive Date: 20090619
  Receipt Date: 20090406
  Transmission Date: 20091009
  Serious: No
  Sender: FDA-Public Use
  Company Number: US-AMGEN-KDL341634

PATIENT
  Sex: Male

DRUGS (11)
  1. ARANESP [Suspect]
     Indication: ANAEMIA OF MALIGNANT DISEASE
     Dates: start: 20090324
  2. ADVAIR HFA [Concomitant]
  3. FLONASE [Concomitant]
  4. NEURONTIN [Concomitant]
  5. LANOXIN [Concomitant]
  6. COMPAZINE [Concomitant]
  7. NEXIUM [Concomitant]
  8. UNSPECIFIED MEDICATION [Concomitant]
  9. OSCAL D [Concomitant]
  10. GAVISCON [Concomitant]
  11. UNSPECIFIED ANTINEOPLASTIC AGENT [Concomitant]

REACTIONS (3)
  - PRODUCTIVE COUGH [None]
  - RED BLOOD CELL COUNT DECREASED [None]
  - SNEEZING [None]
